FAERS Safety Report 4819110-X (Version None)
Quarter: 2005Q4

REPORT INFORMATION
  Report Type: 
  Country: None (occurrence: None)
  Receive Date: 20051031
  Receipt Date: 20050815
  Transmission Date: 20060501
  Serious: No
  Sender: FDA-Public Use
  Company Number: 2005PV001076

PATIENT
  Age: 62 Year
  Sex: Female
  Weight: 56.6996 kg

DRUGS (8)
  1. SYMLIN [Suspect]
     Indication: DIABETES MELLITUS INSULIN-DEPENDENT
     Dosage: 15 MCG, TID; SC
     Route: 058
     Dates: start: 20050815
  2. LEVOTHYROXINE SODIUM [Suspect]
     Dosage: 0.137 MG, QD; PO
     Route: 048
  3. LEVOTHYROXINE SODIUM [Concomitant]
  4. NOVOLOG [Concomitant]
  5. ALTACE [Concomitant]
  6. PAXIL [Concomitant]
  7. LIPITOR [Concomitant]
  8. XANAX [Concomitant]

REACTIONS (4)
  - ABDOMINAL PAIN UPPER [None]
  - BLOOD GLUCOSE INCREASED [None]
  - DIZZINESS [None]
  - NAUSEA [None]
